FAERS Safety Report 23522677 (Version 2)
Quarter: 2024Q2

REPORT INFORMATION
  Report Type: Spontaneous
  Country: US (occurrence: US)
  Receive Date: 20240214
  Receipt Date: 20240425
  Transmission Date: 20240716
  Serious: Yes (Death)
  Sender: FDA-Public Use
  Company Number: US-002147023-NVSC2024US031525

PATIENT
  Age: 77 Year

DRUGS (1)
  1. PLUVICTO [Suspect]
     Active Substance: LUTETIUM LU-177 VIPIVOTIDE TETRAXETAN
     Indication: Product used for unknown indication
     Dosage: 200 MCI
     Route: 042
     Dates: start: 20230713, end: 20230713

REACTIONS (1)
  - Death [Fatal]

NARRATIVE: CASE EVENT DATE: 20230720
